FAERS Safety Report 5006789-5 (Version None)
Quarter: 2006Q2

REPORT INFORMATION
  Report Type: 
  Country: None (occurrence: None)
  Receive Date: 20060516
  Receipt Date: 20060505
  Transmission Date: 20061013
  Serious: Yes (Disabling)
  Sender: FDA-Public Use
  Company Number: 2006EU001483

PATIENT
  Age: 40 Year
  Sex: Female

DRUGS (2)
  1. PROTOPIC [Suspect]
     Indication: VITILIGO
     Dosage: SEE IMAGE, TOPICAL
     Route: 061
     Dates: start: 20050901, end: 20060301
  2. PROTOPIC [Suspect]
     Indication: VITILIGO
     Dosage: SEE IMAGE, TOPICAL
     Route: 061
     Dates: start: 20060401

REACTIONS (2)
  - BASEDOW'S DISEASE [None]
  - IMPAIRED WORK ABILITY [None]
